FAERS Safety Report 10736311 (Version 2)
Quarter: 2015Q1

REPORT INFORMATION
  Report Type: Report from Study
  Country: ZA (occurrence: None)
  Receive Date: 20150122
  Receipt Date: 20150202
  Transmission Date: 20150721
  Serious: Yes (Death)
  Sender: FDA-Public Use
  Company Number: 2015MPI00015

PATIENT
  Age: 21 Year
  Sex: Female
  Weight: 91.6 kg

DRUGS (13)
  1. PARACETAMOL (PARACETAMOL) [Concomitant]
     Active Substance: ACETAMINOPHEN
  2. DOXORUBICIN (DOXORUBICIN) INJECTION [Suspect]
     Active Substance: DOXORUBICIN
     Indication: HODGKIN^S DISEASE
     Route: 042
     Dates: start: 20141217, end: 20141230
  3. DACARBAZINE (DACARBAZINE) INJECTION [Suspect]
     Active Substance: DACARBAZINE
     Indication: HODGKIN^S DISEASE
     Route: 042
     Dates: start: 20141217, end: 20141230
  4. CELEBREX [Concomitant]
     Active Substance: CELECOXIB
  5. IMODIUM (LOPERAMIDE HYDROCHLORIDE) [Concomitant]
  6. BRENTUXIMAB VEDOTIN (BRENTUXIMAB VEDOTIN) INJECTION [Suspect]
     Active Substance: BRENTUXIMAB VEDOTIN
     Indication: HODGKIN^S DISEASE
     Route: 042
     Dates: start: 20141217, end: 20141230
  7. VINBLASTINE (VINBLASTIN SULFATE) INJECTION [Suspect]
     Active Substance: VINBLASTINE
     Indication: HODGKIN^S DISEASE
     Route: 042
     Dates: start: 20141217, end: 20141230
  8. ULSANIC (SUCRALFATE) [Concomitant]
  9. AMOCLAN (AMOXICILLIN, CLAVULANIC ACID) [Concomitant]
  10. ALLOPURINOL (ALLOPURINOL) [Concomitant]
     Active Substance: ALLOPURINOL
  11. CIPROBAY (CIPROFLOXACIN LACTATE) [Concomitant]
  12. DAKTARIN (MICONAZOLE) [Concomitant]
     Active Substance: MICONAZOLE NITRATE
  13. FUROSEMIDE (FUROSEMIDE) [Concomitant]
     Active Substance: FUROSEMIDE

REACTIONS (5)
  - Abdominal pain upper [None]
  - Neutropenia [None]
  - Shock [None]
  - Dehydration [None]
  - Infection [None]

NARRATIVE: CASE EVENT DATE: 20150106
